FAERS Safety Report 17567118 (Version 2)
Quarter: 2021Q3

REPORT INFORMATION
  Report Type: Spontaneous
  Country: US (occurrence: US)
  Receive Date: 20200320
  Receipt Date: 20210806
  Transmission Date: 20211014
  Serious: Yes (Other)
  Sender: FDA-Public Use
  Company Number: US-TEVA-2020-US-1208698

PATIENT

DRUGS (8)
  1. VALSARTAN SOLCO [Suspect]
     Active Substance: VALSARTAN
     Dosage: DOSE: 160 MG
     Route: 048
  2. VALSARTAN AND HYDROCHLOROTHIAZIDE SOLCO [Suspect]
     Active Substance: HYDROCHLOROTHIAZIDE\VALSARTAN
     Route: 048
  3. VALSARTAN SOLCO [Suspect]
     Active Substance: VALSARTAN
     Indication: HYPERTENSION
     Dosage: DOSE: 40 MG
     Route: 048
  4. VALSARTAN SOLCO [Suspect]
     Active Substance: VALSARTAN
     Dosage: DOSE: 320 MG
     Route: 048
  5. VALSARTAN SOLCO [Suspect]
     Active Substance: VALSARTAN
     Dosage: DOSE: 80 MG
     Route: 048
  6. VALSARTAN AND HYDROCHLOROTHIAZIDE SOLCO [Suspect]
     Active Substance: HYDROCHLOROTHIAZIDE\VALSARTAN
     Indication: HYPERTENSION
     Dosage: DOSE: 80 MG
     Route: 048
  7. VALSARTAN AND HYDROCHLOROTHIAZIDE SOLCO [Suspect]
     Active Substance: HYDROCHLOROTHIAZIDE\VALSARTAN
     Dosage: DOSE: 160 MG
     Route: 048
  8. VALSARTAN AND HYDROCHLOROTHIAZIDE SOLCO [Suspect]
     Active Substance: HYDROCHLOROTHIAZIDE\VALSARTAN
     Dosage: DOSE: 320 MG
     Route: 048

REACTIONS (1)
  - Colorectal cancer [Unknown]
